FAERS Safety Report 19265288 (Version 1)
Quarter: 2021Q2

REPORT INFORMATION
  Report Type: Spontaneous
  Country: US (occurrence: US)
  Receive Date: 20210516
  Receipt Date: 20210516
  Transmission Date: 20210717
  Serious: No
  Sender: FDA-Public Use
  Company Number: None

PATIENT
  Age: 7 Year
  Sex: Male
  Weight: 27 kg

DRUGS (1)
  1. LUBRICANT EYE DROPS [Suspect]
     Active Substance: POLYETHYLENE GLYCOL 400\PROPYLENE GLYCOL
     Indication: OCULAR HYPERAEMIA
     Dosage: ?          QUANTITY:2 DROP(S);?
     Route: 047
     Dates: start: 20210515, end: 20210515

REACTIONS (3)
  - Lacrimation increased [None]
  - Eye swelling [None]
  - Pruritus [None]

NARRATIVE: CASE EVENT DATE: 20210515
